FAERS Safety Report 11920874 (Version 3)
Quarter: 2016Q1

REPORT INFORMATION
  Report Type: Spontaneous
  Country: GB (occurrence: GB)
  Receive Date: 20160115
  Receipt Date: 20160318
  Transmission Date: 20160526
  Serious: Yes (Death, Hospitalization)
  Sender: FDA-Public Use
  Company Number: GB-NOVOPROD-475841

PATIENT
  Sex: Male

DRUGS (2)
  1. LANTUS [Suspect]
     Active Substance: INSULIN GLARGINE
     Indication: INTENTIONAL PRODUCT MISUSE
     Dosage: UNK
     Route: 065
  2. NOVORAPID [Suspect]
     Active Substance: INSULIN ASPART
     Indication: INTENTIONAL PRODUCT MISUSE
     Dosage: 200 TO 250 ML
     Route: 065
     Dates: start: 20151114

REACTIONS (2)
  - Intentional product misuse [Recovered/Resolved]
  - Intentional overdose [Fatal]

NARRATIVE: CASE EVENT DATE: 20151114
